FAERS Safety Report 7115633-1 (Version None)
Quarter: 2010Q4

REPORT INFORMATION
  Report Type: 
  Country: None (occurrence: None)
  Receive Date: 20101122
  Receipt Date: 20101112
  Transmission Date: 20110411
  Serious: Yes (Other)
  Sender: FDA-Public Use
  Company Number: IT-JNJFOC-20101104933

PATIENT
  Sex: Female

DRUGS (3)
  1. DAKTARIN [Suspect]
     Route: 048
  2. DAKTARIN [Suspect]
     Indication: FUNGAL INFECTION
     Route: 048
  3. COUMADIN [Interacting]
     Indication: ATRIAL FIBRILLATION
     Route: 048

REACTIONS (4)
  - DRUG INTERACTION [None]
  - ECCHYMOSIS [None]
  - INTERNATIONAL NORMALISED RATIO INCREASED [None]
  - MOUTH HAEMORRHAGE [None]
